FAERS Safety Report 15306333 (Version 1)
Quarter: 2018Q3

REPORT INFORMATION
  Report Type: Spontaneous
  Country: BR (occurrence: BR)
  Receive Date: 20180822
  Receipt Date: 20180822
  Transmission Date: 20181010
  Serious: Yes (Other)
  Sender: FDA-Public Use
  Company Number: BR-BAYER-2018-157730

PATIENT
  Sex: Female

DRUGS (2)
  1. ALLURENE [Suspect]
     Active Substance: DIENOGEST
     Indication: ENDOMETRIOSIS
     Dosage: 2 MG
     Route: 048
     Dates: start: 2015
  2. MIRENA [Suspect]
     Active Substance: LEVONORGESTREL
     Indication: ENDOMETRIOSIS
     Dosage: 20 MCG/24HR, CONT
     Route: 015

REACTIONS (5)
  - Pulmonary embolism [None]
  - Thrombosis [None]
  - Off label use [None]
  - Product use in unapproved indication [None]
  - Subclavian vein thrombosis [None]
